FAERS Safety Report 5644949-0 (Version None)
Quarter: 2008Q1

REPORT INFORMATION
  Report Type: 
  Country: None (occurrence: None)
  Receive Date: 20080229
  Receipt Date: 20080102
  Transmission Date: 20080703
  Serious: No
  Sender: FDA-Public Use
  Company Number: A0694512A

PATIENT
  Age: 23 Year
  Sex: Female

DRUGS (2)
  1. VALTREX [Suspect]
     Dosage: 2G TWICE PER DAY
     Route: 048
     Dates: start: 20070101, end: 20070101
  2. BIRTH CONTROL PILLS [Concomitant]

REACTIONS (1)
  - ORAL HERPES [None]
